FAERS Safety Report 17840025 (Version 1)
Quarter: 2020Q2

REPORT INFORMATION
  Report Type: Spontaneous
  Country: US (occurrence: US)
  Receive Date: 20200529
  Receipt Date: 20200529
  Transmission Date: 20200714
  Serious: No
  Sender: FDA-Public Use
  Company Number: US-ACCORD-132716

PATIENT
  Age: 33 Year
  Sex: Male
  Weight: 68.04 kg

DRUGS (1)
  1. CLONAZEPAM ACCORD [Suspect]
     Active Substance: CLONAZEPAM
     Indication: PERSONALITY DISORDER
     Dosage: STRENGTH: 1 MG?DOSE: 1 MG TWICE A DAY
     Route: 048
     Dates: start: 20190504

REACTIONS (6)
  - Malaise [Not Recovered/Not Resolved]
  - Feeling abnormal [Not Recovered/Not Resolved]
  - Wrong technique in product usage process [Unknown]
  - Off label use [Unknown]
  - Dizziness [Not Recovered/Not Resolved]
  - Product substitution issue [Unknown]
